FAERS Safety Report 4716066-5 (Version None)
Quarter: 2005Q3

REPORT INFORMATION
  Report Type: 
  Country: None (occurrence: None)
  Receive Date: 20050718
  Receipt Date: 20050706
  Transmission Date: 20060218
  Serious: Yes (Hospitalization, Other)
  Sender: FDA-Public Use
  Company Number: FR-JNJFOC-20050502011

PATIENT
  Age: 47 Year
  Sex: Female
  Weight: 48 kg

DRUGS (14)
  1. REMICADE [Suspect]
     Route: 042
  2. REMICADE [Suspect]
     Route: 042
  3. REMICADE [Suspect]
     Route: 042
  4. REMICADE [Suspect]
     Dosage: 8TH INFUSION
     Route: 042
  5. REMICADE [Suspect]
     Dosage: 7TH INFUSION
     Route: 042
  6. REMICADE [Suspect]
     Indication: CROHN'S DISEASE
     Route: 042
  7. IMUREL [Concomitant]
     Indication: CROHN'S DISEASE
     Route: 048
  8. SOLUPRED [Concomitant]
     Dosage: DOSE INCREASED FROM 5MG TO 30 MG FOR 15 DAYS
     Route: 048
  9. APROVEL [Concomitant]
     Route: 048
  10. LEVONORGESTREL AND ETHINYL ESTRADIOL [Concomitant]
  11. LEVONORGESTREL AND ETHINYL ESTRADIOL [Concomitant]
  12. DEBRIDAT [Concomitant]
  13. LEVONORGESTREL AND ETHINYL ESTRADIOL [Concomitant]
     Route: 048
  14. LEVONORGESTREL AND ETHINYL ESTRADIOL [Concomitant]
     Route: 048

REACTIONS (5)
  - CYTOLYTIC HEPATITIS [None]
  - GAMMA-GLUTAMYLTRANSFERASE INCREASED [None]
  - HEPATIC NECROSIS [None]
  - HEPATITIS [None]
  - TRANSAMINASES INCREASED [None]
